FAERS Safety Report 25678278 (Version 1)
Quarter: 2025Q3

REPORT INFORMATION
  Report Type: Report from Study
  Country: US (occurrence: US)
  Receive Date: 20250813
  Receipt Date: 20250813
  Transmission Date: 20251021
  Serious: Yes (Other)
  Sender: ALEXION PHARMACEUTICALS
  Company Number: US-AstraZeneca-CH-00929295A

PATIENT
  Sex: Female
  Weight: 99.79 kg

DRUGS (1)
  1. ANIFROLUMAB [Suspect]
     Active Substance: ANIFROLUMAB
     Indication: Systemic lupus erythematosus
     Dosage: 300 MILLIGRAM, Q4W

REACTIONS (5)
  - Loss of consciousness [Unknown]
  - Nervousness [Unknown]
  - Palpitations [Unknown]
  - Dizziness [Unknown]
  - Ear discomfort [Unknown]
